FAERS Safety Report 8348863-1 (Version None)
Quarter: 2012Q2

REPORT INFORMATION
  Report Type: 
  Country: None (occurrence: None)
  Receive Date: 20120508
  Receipt Date: 20120503
  Transmission Date: 20120825
  Serious: Yes (Hospitalization)
  Sender: FDA-Public Use
  Company Number: 2011SP034943

PATIENT
  Age: 38 Year
  Sex: Female
  Weight: 58.9676 kg

DRUGS (1)
  1. NUVARING [Suspect]
     Indication: CONTRACEPTION
     Dates: start: 20080101, end: 20090724

REACTIONS (4)
  - NEPHROLITHIASIS [None]
  - STREPTOCOCCUS TEST POSITIVE [None]
  - UPPER RESPIRATORY TRACT INFECTION [None]
  - PLEURAL EFFUSION [None]
